FAERS Safety Report 20024164 (Version 1)
Quarter: 2021Q4

REPORT INFORMATION
  Report Type: Report from Study
  Country: EG (occurrence: EG)
  Receive Date: 20211102
  Receipt Date: 20211102
  Transmission Date: 20220304
  Serious: Yes (Other)
  Sender: FDA-Public Use
  Company Number: EG-NOVARTISPH-NVSC2021EG249447

PATIENT
  Age: 68 Year
  Sex: Male

DRUGS (1)
  1. ENTRESTO [Suspect]
     Active Substance: SACUBITRIL\VALSARTAN
     Indication: Cardiac failure
     Dosage: 1 DF, BID
     Route: 048
     Dates: start: 20210325

REACTIONS (4)
  - Dyspnoea [Recovering/Resolving]
  - Hypotension [Recovering/Resolving]
  - Nausea [Recovering/Resolving]
  - Product administration interrupted [Unknown]

NARRATIVE: CASE EVENT DATE: 20211025
